FAERS Safety Report 19233882 (Version 2)
Quarter: 2021Q2

REPORT INFORMATION
  Report Type: Spontaneous
  Country: US (occurrence: US)
  Receive Date: 20210508
  Receipt Date: 20210610
  Transmission Date: 20210717
  Serious: No
  Sender: FDA-Public Use
  Company Number: US-ASTRAZENECA-2021A353056

PATIENT
  Age: 23819 Day
  Sex: Female

DRUGS (1)
  1. SYMBICORT [Suspect]
     Active Substance: BUDESONIDE\FORMOTEROL FUMARATE DIHYDRATE
     Indication: BRONCHITIS
     Dosage: 90/4.5 MCG, 2 PUFFS, TWICE DAILY
     Route: 055
     Dates: start: 20210419

REACTIONS (4)
  - Intentional device misuse [Not Recovered/Not Resolved]
  - Malaise [Not Recovered/Not Resolved]
  - Device delivery system issue [Unknown]
  - SARS-CoV-2 test positive [Unknown]

NARRATIVE: CASE EVENT DATE: 20210419
